FAERS Safety Report 7366993-8 (Version None)
Quarter: 2011Q1

REPORT INFORMATION
  Report Type: 
  Country: None (occurrence: None)
  Receive Date: 20110322
  Receipt Date: 20110311
  Transmission Date: 20110831
  Serious: Yes (Hospitalization, Other)
  Sender: FDA-Public Use
  Company Number: US-PFIZER INC-2006031667

PATIENT
  Sex: Female

DRUGS (6)
  1. NEURONTIN [Suspect]
     Dosage: UNK
  2. WELLBUTRIN [Concomitant]
     Dosage: UNK
  3. PROPRANOLOL [Suspect]
     Dosage: UNK
     Dates: start: 20030222
  4. ZANAFLEX [Concomitant]
     Dosage: UNK
     Dates: start: 20030222
  5. PROZAC [Concomitant]
     Dosage: UNK
     Dates: start: 20030222
  6. ATIVAN [Concomitant]
     Dosage: UNK

REACTIONS (3)
  - OVERDOSE [None]
  - SUICIDAL IDEATION [None]
  - SUICIDE ATTEMPT [None]
